FAERS Safety Report 24955204 (Version 1)
Quarter: 2025Q1

REPORT INFORMATION
  Report Type: Spontaneous
  Country: US (occurrence: US)
  Receive Date: 20250211
  Receipt Date: 20250211
  Transmission Date: 20250409
  Serious: No
  Sender: PADAGIS
  Company Number: US-PADAGIS-2025PAD00099

PATIENT

DRUGS (3)
  1. ESTRADIOL VAGINAL [Suspect]
     Active Substance: ESTRADIOL
     Indication: Hormone level abnormal
     Route: 065
  2. ESTRADIOL VAGINAL [Suspect]
     Active Substance: ESTRADIOL
     Indication: Discomfort
  3. ESTRADIOL VAGINAL [Suspect]
     Active Substance: ESTRADIOL
     Indication: Prophylaxis urinary tract infection

REACTIONS (2)
  - Pruritus [Unknown]
  - Device issue [Unknown]
